FAERS Safety Report 11118000 (Version 1)
Quarter: 2015Q2

REPORT INFORMATION
  Report Type: Spontaneous
  Country: US (occurrence: None)
  Receive Date: 20150514
  Receipt Date: 20150514
  Transmission Date: 20150821
  Serious: Yes (Hospitalization)
  Sender: FDA-Public Use
  Company Number: 15AE022

PATIENT
  Sex: Female

DRUGS (14)
  1. ATORVASTATIN [Concomitant]
     Active Substance: ATORVASTATIN
  2. POTASSIUM CHLORIDE. [Concomitant]
     Active Substance: POTASSIUM CHLORIDE
  3. EQUATE ACETAMINOPHEN [Suspect]
     Active Substance: ACETAMINOPHEN
     Indication: ARTHRALGIA
     Dosage: 6 THROUGHOUT THE DAY
  4. SPIRIVA [Concomitant]
     Active Substance: TIOTROPIUM BROMIDE MONOHYDRATE
  5. CENTRUM SILVER [Concomitant]
     Active Substance: VITAMINS
  6. ADVAIR HFA [Concomitant]
     Active Substance: FLUTICASONE PROPIONATE\SALMETEROL XINAFOATE
  7. CALCIUM [Concomitant]
     Active Substance: CALCIUM
  8. NASONEX [Concomitant]
     Active Substance: MOMETASONE FUROATE
  9. PROVENTIL [Concomitant]
     Active Substance: ALBUTEROL
  10. FUROSEMIDE. [Concomitant]
     Active Substance: FUROSEMIDE
  11. TOPIRAMATE. [Concomitant]
     Active Substance: TOPIRAMATE
  12. ACETAMINOPHEN. [Concomitant]
     Active Substance: ACETAMINOPHEN
  13. EQUATE ACETAMINOPHEN [Suspect]
     Active Substance: ACETAMINOPHEN
     Indication: PAIN
     Dosage: 6 THROUGHOUT THE DAY
  14. XARELTO [Concomitant]
     Active Substance: RIVAROXABAN

REACTIONS (6)
  - Dizziness [None]
  - Blood pressure increased [None]
  - Atrial fibrillation [None]
  - Chest pain [None]
  - Chest discomfort [None]
  - Heart rate decreased [None]

NARRATIVE: CASE EVENT DATE: 20150427
